FAERS Safety Report 10911830 (Version 6)
Quarter: 2018Q3

REPORT INFORMATION
  Report Type: Spontaneous
  Country: GB (occurrence: GB)
  Receive Date: 20150313
  Receipt Date: 20180906
  Transmission Date: 20181010
  Serious: Yes (Death, Congenital Anomaly, Other)
  Sender: FDA-Public Use
  Company Number: GB-009507513-1503GBR006147

PATIENT
  Sex: Male

DRUGS (2)
  1. ISENTRESS [Suspect]
     Active Substance: RALTEGRAVIR POTASSIUM
     Indication: HIV INFECTION
     Dosage: 800 MG/ DAY
     Route: 064
     Dates: start: 20150210
  2. TRUVADA [Suspect]
     Active Substance: EMTRICITABINE\TENOFOVIR DISOPROXIL FUMARATE
     Indication: HIV INFECTION
     Dosage: TOTAL DAILY DOSE 1 DF
     Route: 064
     Dates: start: 20150210

REACTIONS (3)
  - Premature baby death [Fatal]
  - Foetal exposure during pregnancy [Recovered/Resolved]
  - Congenital hand malformation [Unknown]

NARRATIVE: CASE EVENT DATE: 201502
